FAERS Safety Report 5338229-0 (Version None)
Quarter: 2007Q2

REPORT INFORMATION
  Report Type: 
  Country: None (occurrence: None)
  Receive Date: 20070327
  Receipt Date: 20070118
  Transmission Date: 20071010
  Serious: Yes (Other)
  Sender: FDA-Public Use
  Company Number: 226130

PATIENT
  Sex: Male

DRUGS (2)
  1. AVASTIN [Suspect]
     Indication: PANCREATIC CARCINOMA
     Dates: start: 20060401
  2. TARCEVA [Concomitant]

REACTIONS (1)
  - INTESTINAL PERFORATION [None]
